FAERS Safety Report 6269953-3 (Version None)
Quarter: 2009Q3

REPORT INFORMATION
  Report Type: 
  Country: None (occurrence: None)
  Receive Date: 20090716
  Receipt Date: 20090707
  Transmission Date: 20100115
  Serious: Yes (Other)
  Sender: FDA-Public Use
  Company Number: US-ROCHE-598052

PATIENT
  Age: 60 Year
  Sex: Female

DRUGS (1)
  1. BONIVA [Suspect]
     Indication: OSTEOPOROSIS
     Route: 042
     Dates: start: 20070101

REACTIONS (5)
  - INFLAMMATION [None]
  - INJECTION SITE MASS [None]
  - INJECTION SITE NODULE [None]
  - PHLEBITIS [None]
  - THROMBOSIS [None]
